FAERS Safety Report 10386758 (Version 1)
Quarter: 2014Q1

REPORT INFORMATION
  Report Type: Spontaneous
  Country: US (occurrence: None)
  Receive Date: 20140306
  Receipt Date: 20140306
  Transmission Date: 20141002
  Serious: Yes (Hospitalization)
  Sender: FDA-Public Use
  Company Number: 163-21880-13062321

PATIENT
  Age: 74 Year
  Sex: Male

DRUGS (10)
  1. REVLIMID (LENALIDOMIDE) (10 MILLIGRAM, CAPSULES) [Suspect]
     Indication: PLASMA CELL MYELOMA
     Dosage: 14 IN 14 D
     Route: 048
     Dates: start: 20091023, end: 2010
  2. AMLODIPINE BESYLATE (AMLODIPINE BESILATE) [Concomitant]
  3. BABY ASPIRIN (ACETYLSALICYLIC ACID) [Concomitant]
  4. BYSTOLIC (NEBIVOLOL HYDROCHLORIDE) [Concomitant]
  5. CALCIUM MAGNESIUIM ZINC (CALCIUM MAGNESIUM ZINC) [Concomitant]
  6. FENOFIBRATE (FENOFIBRATE) [Concomitant]
  7. DEXAMETHASONE (DEXAMETHASONE) [Concomitant]
  8. FISH OIL (FISH OIL) [Concomitant]
  9. GLIPIZIDE (GLIPIZIDE) [Concomitant]
  10. VELCADE (BORTEZOMIB) [Concomitant]

REACTIONS (1)
  - Cardiac failure congestive [None]
